FAERS Safety Report 24897311 (Version 6)
Quarter: 2025Q1

REPORT INFORMATION
  Report Type: Report from Study
  Country: BE (occurrence: BE)
  Receive Date: 20250129
  Receipt Date: 20250304
  Transmission Date: 20250409
  Serious: Yes (Hospitalization)
  Sender: ABBVIE
  Company Number: BE-ABBVIE-6091527

PATIENT
  Age: 79 Year
  Sex: Female

DRUGS (2)
  1. FOSCARBIDOPA\FOSLEVODOPA [Suspect]
     Active Substance: FOSCARBIDOPA\FOSLEVODOPA
     Indication: Parkinson^s disease
     Route: 058
     Dates: start: 20250113, end: 20250117
  2. FOSCARBIDOPA\FOSLEVODOPA [Suspect]
     Active Substance: FOSCARBIDOPA\FOSLEVODOPA
     Route: 058
     Dates: start: 20250117

REACTIONS (14)
  - Urinary tract infection [Recovered/Resolved]
  - Fatigue [Unknown]
  - Apathy [Unknown]
  - Dyskinesia [Recovering/Resolving]
  - Muscle rigidity [Unknown]
  - Bradykinesia [Unknown]
  - On and off phenomenon [Unknown]
  - Amnesia [Unknown]
  - Back pain [Unknown]
  - Reduced facial expression [Unknown]
  - Dysarthria [Unknown]
  - Disorientation [Unknown]
  - Hallucination [Unknown]
  - Confusional state [Recovering/Resolving]

NARRATIVE: CASE EVENT DATE: 20250101
